FAERS Safety Report 24791604 (Version 1)
Quarter: 2024Q4

REPORT INFORMATION
  Report Type: Spontaneous
  Country: FR (occurrence: FR)
  Receive Date: 20241231
  Receipt Date: 20241231
  Transmission Date: 20250115
  Serious: Yes (Life-Threatening, Other)
  Sender: AUROBINDO
  Company Number: FR-AFSSAPS-NC2024001602

PATIENT
  Age: 43 Year
  Sex: Male
  Weight: 65 kg

DRUGS (5)
  1. LANSOPRAZOLE [Suspect]
     Active Substance: LANSOPRAZOLE
     Indication: Poisoning deliberate
     Dosage: 210 MILLIGRAM
     Route: 048
     Dates: start: 20241123, end: 20241123
  2. ZOPICLONE [Suspect]
     Active Substance: ZOPICLONE
     Indication: Poisoning deliberate
     Dosage: 105 MILLIGRAM
     Route: 048
     Dates: start: 20241123, end: 20241123
  3. KETOPROFEN [Suspect]
     Active Substance: KETOPROFEN
     Indication: Poisoning deliberate
     Dosage: 1 STRIP OF 100 MG
     Route: 048
     Dates: start: 20241123, end: 20241123
  4. ATARAX [Suspect]
     Active Substance: HYDROXYZINE HYDROCHLORIDE
     Indication: Poisoning deliberate
     Dosage: 3 DOSAGE FORM
     Route: 048
     Dates: start: 20241123, end: 20241123
  5. LOXAPINE [Suspect]
     Active Substance: LOXAPINE
     Indication: Poisoning deliberate
     Dosage: 30 DOSAGE FORM
     Route: 048
     Dates: start: 20241123, end: 20241123

REACTIONS (2)
  - Coma [Recovered/Resolved]
  - Vomiting [Recovered/Resolved]

NARRATIVE: CASE EVENT DATE: 20241123
